FAERS Safety Report 9355848 (Version 2)
Quarter: 2013Q3

REPORT INFORMATION
  Report Type: Spontaneous
  Country: FR (occurrence: None)
  Receive Date: 20130614
  Receipt Date: 20130705
  Transmission Date: 20140515
  Serious: Yes (Hospitalization)
  Sender: FDA-Public Use
  Company Number: FR-1198667

PATIENT
  Sex: Male
  Weight: 90 kg

DRUGS (2)
  1. AZOPT 1% OPHTHALMIC SUSPENSION (AZOPT 1%) [Suspect]
     Indication: GLAUCOMA
     Route: 047
     Dates: start: 20130529, end: 20130601
  2. XALATAN [Concomitant]

REACTIONS (11)
  - Arrhythmia [None]
  - Dyspnoea [None]
  - Chest pain [None]
  - Pollakiuria [None]
  - Nervousness [None]
  - Tremor [None]
  - Speech disorder [None]
  - Feeling abnormal [None]
  - Tremor [None]
  - Asphyxia [None]
  - Feeling abnormal [None]
